FAERS Safety Report 5664053-5 (Version None)
Quarter: 2008Q1

REPORT INFORMATION
  Report Type: 
  Country: None (occurrence: None)
  Receive Date: 20080314
  Receipt Date: 20080307
  Transmission Date: 20080703
  Serious: Yes (Death, Hospitalization)
  Sender: FDA-Public Use
  Company Number: US-NOVOPROD-272969

PATIENT
  Age: 60 Year
  Sex: Male

DRUGS (2)
  1. NOVOLIN R [Suspect]
     Indication: DIABETIC KETOACIDOSIS
     Dosage: UNK, UNK
     Route: 042
     Dates: start: 20080301, end: 20080303
  2. NOVOLIN R [Suspect]
     Indication: HYPERGLYCAEMIA

REACTIONS (2)
  - DIABETIC KETOACIDOSIS [None]
  - ORGAN FAILURE [None]
